FAERS Safety Report 5670346-8 (Version None)
Quarter: 2008Q1

REPORT INFORMATION
  Report Type: 
  Country: None (occurrence: None)
  Receive Date: 20080318
  Receipt Date: 20080318
  Transmission Date: 20080703
  Serious: Yes (Other)
  Sender: FDA-Public Use
  Company Number: None

PATIENT
  Age: 39 Year
  Sex: Female
  Weight: 63.5036 kg

DRUGS (1)
  1. HEP-LOCK [Suspect]
     Indication: INDWELLING CATHETER MANAGEMENT
     Dosage: 5ML AFTER INFUSION OR BL DRAW MAINTAIN PORT IV
     Route: 042
     Dates: start: 20070101, end: 20071001

REACTIONS (5)
  - DYSPNOEA [None]
  - FLUSHING [None]
  - PHARMACEUTICAL PRODUCT COMPLAINT [None]
  - TACHYCARDIA [None]
  - THROAT IRRITATION [None]
